FAERS Safety Report 7069388-X (Version None)
Quarter: 2010Q4

REPORT INFORMATION
  Report Type: 
  Country: None (occurrence: None)
  Receive Date: 20101028
  Receipt Date: 20101015
  Transmission Date: 20110411
  Serious: Yes (Hospitalization, Other)
  Sender: FDA-Public Use
  Company Number: US-AMGEN-USASP2010000573

PATIENT

DRUGS (6)
  1. NPLATE [Suspect]
     Indication: THROMBOCYTOPENIA
     Dosage: 2 A?G/KG, UNK
     Dates: start: 20100423, end: 20100520
  2. CORTICOSTEROIDS [Concomitant]
     Dosage: UNK
     Dates: start: 20090901
  3. MUSTARGEN [Concomitant]
     Dosage: UNK
     Dates: start: 20090825
  4. ONCOVIN [Concomitant]
     Dosage: UNK
     Dates: start: 20090825
  5. PROCARBAZINE [Concomitant]
     Dosage: UNK
     Dates: start: 20090825
  6. PREDNISONE [Concomitant]
     Dosage: UNK

REACTIONS (2)
  - DRUG INEFFECTIVE [None]
  - MALIGNANT NEOPLASM PROGRESSION [None]
